FAERS Safety Report 24340748 (Version 1)
Quarter: 2024Q3

REPORT INFORMATION
  Report Type: Spontaneous
  Country: CN (occurrence: CN)
  Receive Date: 20240919
  Receipt Date: 20240919
  Transmission Date: 20241016
  Serious: Yes (Hospitalization)
  Sender: ELI LILLY AND CO
  Company Number: CN-Merck Healthcare KGaA-2024048411

PATIENT
  Age: 61 Year
  Sex: Male

DRUGS (2)
  1. ERBITUX [Suspect]
     Active Substance: CETUXIMAB
     Indication: Hypopharyngeal cancer
     Dosage: 700 MG, UNKNOWN
     Route: 041
     Dates: start: 20240806, end: 20240806
  2. CAPECITABINE [Suspect]
     Active Substance: CAPECITABINE
     Indication: Hypopharyngeal cancer
     Dosage: 1.5 G, DAILY
     Route: 048
     Dates: start: 20240806, end: 20240819

REACTIONS (1)
  - Full blood count decreased [Recovering/Resolving]

NARRATIVE: CASE EVENT DATE: 20240827
